FAERS Safety Report 6054785-1 (Version None)
Quarter: 2009Q1

REPORT INFORMATION
  Report Type: 
  Country: None (occurrence: None)
  Receive Date: 20090128
  Receipt Date: 20090115
  Transmission Date: 20090719
  Serious: Yes (Other)
  Sender: FDA-Public Use
  Company Number: US-BIOGENIDEC-2007BI015219

PATIENT
  Age: 58 Year
  Sex: Female

DRUGS (4)
  1. AVONEX [Suspect]
     Indication: MULTIPLE SCLEROSIS
     Route: 030
     Dates: start: 20031110, end: 20070122
  2. WELLBUTRIN [Concomitant]
  3. ALPRAZOLAM [Concomitant]
  4. DOXYCYCLINE [Concomitant]

REACTIONS (2)
  - RETINAL DETACHMENT [None]
  - THROMBOCYTOPENIA [None]
